FAERS Safety Report 5381944-3 (Version None)
Quarter: 2007Q2

REPORT INFORMATION
  Report Type: 
  Country: None (occurrence: None)
  Receive Date: 20070629
  Receipt Date: 20070308
  Transmission Date: 20071010
  Serious: Yes (Hospitalization)
  Sender: FDA-Public Use
  Company Number: PHEH2006US08572

PATIENT
  Age: 23 Year
  Sex: Female
  Weight: 31.1 kg

DRUGS (6)
  1. EXJADE [Suspect]
     Dosage: 125 MG, QD, ORAL
     Route: 048
     Dates: start: 20060324, end: 20060503
  2. COUMADIN [Concomitant]
  3. PEPCID [Concomitant]
  4. CYCLOSPORINE [Concomitant]
  5. PENICILLIN [Concomitant]
  6. BACTRIM [Concomitant]

REACTIONS (3)
  - ABDOMINAL PAIN [None]
  - DECREASED APPETITE [None]
  - DIARRHOEA [None]
